FAERS Safety Report 18783446 (Version 2)
Quarter: 2021Q1

REPORT INFORMATION
  Report Type: Spontaneous
  Country: US (occurrence: US)
  Receive Date: 20210125
  Receipt Date: 20210215
  Transmission Date: 20210419
  Serious: No
  Sender: FDA-Public Use
  Company Number: US-ASTRAZENECA-2021A006044

PATIENT
  Age: 2827 Week
  Sex: Female

DRUGS (1)
  1. BYDUREON BCISE [Suspect]
     Active Substance: EXENATIDE
     Indication: TYPE 2 DIABETES MELLITUS
     Dosage: 2.0MG UNKNOWN
     Route: 065

REACTIONS (3)
  - Incorrect dose administered by device [Unknown]
  - Injection site extravasation [Unknown]
  - Needle issue [Unknown]

NARRATIVE: CASE EVENT DATE: 20210110
